FAERS Safety Report 9414319 (Version 1)
Quarter: 2013Q2

REPORT INFORMATION
  Report Type: Spontaneous
  Country: US (occurrence: None)
  Receive Date: 20130614
  Receipt Date: 20130614
  Transmission Date: 20140414
  Serious: Yes (Other)
  Sender: FDA-Public Use
  Company Number: 2013AP005848

PATIENT
  Sex: Female

DRUGS (2)
  1. ALENDRONATE SODIUM TABLETS [Suspect]
     Indication: OSTEOPOROSIS
     Dates: start: 2005, end: 2011
  2. ALENDRONATE SODIUM TABLETS [Concomitant]
     Indication: OSTEOPOROSIS
     Dates: start: 2005, end: 2011

REACTIONS (7)
  - Injury [None]
  - Pain [None]
  - Anxiety [None]
  - Emotional distress [None]
  - Skeletal injury [None]
  - Quality of life decreased [None]
  - Fear of disease [None]
